FAERS Safety Report 9759622 (Version 1)
Quarter: 2013Q4

REPORT INFORMATION
  Report Type: Spontaneous
  Country: US (occurrence: US)
  Receive Date: 20131216
  Receipt Date: 20131216
  Transmission Date: 20140711
  Serious: No
  Sender: FDA-Public Use
  Company Number: US-GILEAD-2010-0028259

PATIENT
  Sex: Male

DRUGS (5)
  1. LETAIRIS [Suspect]
     Indication: PULMONARY ARTERIAL HYPERTENSION
     Route: 048
     Dates: start: 20100217
  2. OXYGEN [Concomitant]
  3. PREDNISONE [Concomitant]
  4. REVATIO [Concomitant]
  5. PERCOCET [Concomitant]

REACTIONS (2)
  - Swelling face [Unknown]
  - Local swelling [Unknown]
